FAERS Safety Report 21437436 (Version 5)
Quarter: 2023Q1

REPORT INFORMATION
  Report Type: Report from Study
  Country: US (occurrence: US)
  Receive Date: 20221011
  Receipt Date: 20230123
  Transmission Date: 20230418
  Serious: No
  Sender: FDA-Public Use
  Company Number: US-NOVARTISTESTPH-NVSC2022US228696

PATIENT
  Sex: Female

DRUGS (1)
  1. ENTRESTO [Suspect]
     Active Substance: SACUBITRIL\VALSARTAN
     Indication: Product used for unknown indication
     Dosage: 1 DOSAGE FORM, BID
     Route: 048
     Dates: start: 2021

REACTIONS (8)
  - Chest pain [Unknown]
  - Throat clearing [Unknown]
  - Nasal congestion [Unknown]
  - Back pain [Not Recovered/Not Resolved]
  - Flatulence [Unknown]
  - Arthralgia [Unknown]
  - Hypersensitivity [Unknown]
  - Blood pressure decreased [Unknown]
